FAERS Safety Report 14787677 (Version 2)
Quarter: 2018Q2

REPORT INFORMATION
  Report Type: Spontaneous
  Country: US (occurrence: US)
  Receive Date: 20180421
  Receipt Date: 20180512
  Transmission Date: 20180711
  Serious: No
  Sender: FDA-Public Use
  Company Number: US-JNJFOC-20180345006

PATIENT
  Sex: Male

DRUGS (2)
  1. INVEGA SUSTENNA [Suspect]
     Active Substance: PALIPERIDONE PALMITATE
     Indication: BIPOLAR DISORDER
     Route: 030
     Dates: start: 201802
  2. INVEGA SUSTENNA [Suspect]
     Active Substance: PALIPERIDONE PALMITATE
     Indication: MANIA
     Route: 030
     Dates: start: 201802

REACTIONS (10)
  - Dizziness [Unknown]
  - Restlessness [Unknown]
  - Drooling [Unknown]
  - Product label confusion [Unknown]
  - Dyspnoea [Unknown]
  - Product use in unapproved indication [Unknown]
  - Incorrect dose administered [Unknown]
  - Somnolence [Unknown]
  - Sedation complication [Unknown]
  - Off label use [Unknown]

NARRATIVE: CASE EVENT DATE: 2018
